FAERS Safety Report 6429403-0 (Version None)
Quarter: 2009Q4

REPORT INFORMATION
  Report Type: 
  Country: None (occurrence: None)
  Receive Date: 20091102
  Receipt Date: 20091020
  Transmission Date: 20100525
  Serious: Yes (Hospitalization, Other)
  Sender: FDA-Public Use
  Company Number: 1-20478539

PATIENT
  Age: 17 Year
  Sex: Male

DRUGS (3)
  1. BACTRIM [Suspect]
     Indication: PAROTITIS
     Dosage: ORAL
     Route: 048
     Dates: start: 20090801
  2. ANAKINRA [Suspect]
     Indication: JUVENILE ARTHRITIS
     Dosage: 100 MG DAILY, SUBCUTANEOUS
     Route: 058
  3. LEFLUNOMIDE [Suspect]
     Indication: JUVENILE ARTHRITIS
     Dosage: 20 MG ONCE DAILY

REACTIONS (7)
  - HEPATOSPLENOMEGALY [None]
  - HISTIOCYTOSIS HAEMATOPHAGIC [None]
  - HYPERSENSITIVITY [None]
  - LEUKOPENIA [None]
  - PAROTITIS [None]
  - SERUM FERRITIN INCREASED [None]
  - THROMBOCYTOPENIA [None]
